FAERS Safety Report 17902661 (Version 1)
Quarter: 2020Q2

REPORT INFORMATION
  Report Type: Spontaneous
  Country: US (occurrence: US)
  Receive Date: 20200617
  Receipt Date: 20200617
  Transmission Date: 20200714
  Serious: No
  Sender: FDA-Public Use
  Company Number: US-SUN PHARMACEUTICAL INDUSTRIES LTD-2019R1-211658

PATIENT
  Sex: Female
  Weight: 63.95 kg

DRUGS (1)
  1. TECHNETIUM TC99M SULFUR COLLOID [Suspect]
     Active Substance: TECHNETIUM TC-99M SULFUR COLLOID
     Indication: LYMPHATIC MAPPING
     Dosage: UNK
     Route: 023

REACTIONS (1)
  - Radioisotope scan abnormal [Unknown]
